FAERS Safety Report 5153692-6 (Version None)
Quarter: 2006Q4

REPORT INFORMATION
  Report Type: 
  Country: None (occurrence: None)
  Receive Date: 20061114
  Receipt Date: 20061031
  Transmission Date: 20070319
  Serious: Yes (Death)
  Sender: FDA-Public Use
  Company Number: 061009-0000860

PATIENT
  Age: 1 Day
  Sex: Male

DRUGS (7)
  1. INDOMETHACIN SODIUM [Suspect]
     Indication: DRUG USE FOR UNKNOWN INDICATION
     Dosage: 1 MG;QD;IV
     Route: 042
     Dates: start: 20050608, end: 20050101
  2. AMIKACIN SULFATE [Concomitant]
  3. VICCILLIN [Concomitant]
  4. DOBUTREX [Concomitant]
  5. INOVAN [Concomitant]
  6. EPINEPHRINE [Concomitant]
  7. KAYTWO [Concomitant]

REACTIONS (1)
  - SMALL INTESTINAL PERFORATION [None]
